FAERS Safety Report 18882398 (Version 1)
Quarter: 2021Q1

REPORT INFORMATION
  Report Type: Report from Study
  Country: CA (occurrence: CA)
  Receive Date: 20210212
  Receipt Date: 20210212
  Transmission Date: 20210420
  Serious: Yes (Other)
  Sender: FDA-Public Use
  Company Number: CA-JNJFOC-20210215097

PATIENT
  Age: 16 Year
  Sex: Male
  Weight: 58.3 kg

DRUGS (1)
  1. REMICADE [Suspect]
     Active Substance: INFLIXIMAB
     Indication: COLITIS ULCERATIVE
     Dosage: ON 06?FEB?2021, THE PATIENT RECEIVED 16TH 700 MG INFLIXIMAB INFUSION AND PARTIAL MAYO WAS COMPLETED.
     Route: 042
     Dates: start: 20191130

REACTIONS (7)
  - Diarrhoea [Unknown]
  - Rectal haemorrhage [Not Recovered/Not Resolved]
  - Anxiety [Unknown]
  - General physical health deterioration [Unknown]
  - Stress [Unknown]
  - Abdominal pain [Not Recovered/Not Resolved]
  - Frequent bowel movements [Unknown]

NARRATIVE: CASE EVENT DATE: 202101
